FAERS Safety Report 7792217-3 (Version None)
Quarter: 2011Q4

REPORT INFORMATION
  Report Type: 
  Country: None (occurrence: None)
  Receive Date: 20111003
  Receipt Date: 20111003
  Transmission Date: 20120403
  Serious: Yes (Life-Threatening, Hospitalization)
  Sender: FDA-Public Use
  Company Number: None

PATIENT
  Age: 52 Year
  Sex: Female
  Weight: 44.452 kg

DRUGS (1)
  1. DILANTIN [Suspect]
     Indication: EPILEPSY
     Dosage: 200MG
     Dates: start: 20110506, end: 20110926

REACTIONS (9)
  - SENSORY LOSS [None]
  - BURNING SENSATION [None]
  - RASH ERYTHEMATOUS [None]
  - URINE ARSENIC INCREASED [None]
  - POISONING [None]
  - DYSGEUSIA [None]
  - PRODUCT SUBSTITUTION ISSUE [None]
  - TOXICITY TO VARIOUS AGENTS [None]
  - BLOOD ARSENIC INCREASED [None]
